FAERS Safety Report 8338935-X (Version None)
Quarter: 2012Q2

REPORT INFORMATION
  Report Type: 
  Country: None (occurrence: None)
  Receive Date: 20120506
  Receipt Date: 20120423
  Transmission Date: 20120825
  Serious: Yes (Other)
  Sender: FDA-Public Use
  Company Number: CA-MYLANLABS-2012S1008690

PATIENT
  Age: 70 Year
  Sex: Male

DRUGS (4)
  1. ROCURONIUM BROMIDE [Suspect]
     Indication: INDUCTION OF ANAESTHESIA
     Route: 042
  2. SUFENTANIL [Concomitant]
     Indication: INDUCTION OF ANAESTHESIA
     Route: 042
  3. ESMOLOL HCL [Concomitant]
     Indication: HYPERTENSION
     Route: 065
  4. PROPOFOL [Concomitant]
     Indication: INDUCTION OF ANAESTHESIA
     Route: 042

REACTIONS (2)
  - PHAEOCHROMOCYTOMA [None]
  - HYPERTENSION [None]
